FAERS Safety Report 4813292-1 (Version None)
Quarter: 2005Q4

REPORT INFORMATION
  Report Type: 
  Country: None (occurrence: None)
  Receive Date: 20051028
  Receipt Date: 20050425
  Transmission Date: 20060501
  Serious: No
  Sender: FDA-Public Use
  Company Number: US-GLAXOSMITHKLINE-A0555572A

PATIENT
  Age: 65 Year
  Sex: Female

DRUGS (10)
  1. ADVAIR DISKUS 100/50 [Suspect]
     Indication: DRUG USE FOR UNKNOWN INDICATION
     Route: 055
     Dates: start: 20050420
  2. ALBUTEROL [Concomitant]
  3. AVELOX [Concomitant]
  4. LIPITOR [Concomitant]
  5. POTASSIUM [Concomitant]
  6. AVANDIA [Concomitant]
  7. PROZAC [Concomitant]
  8. ALDORIL 15 [Concomitant]
  9. METFORMIN HCL [Concomitant]
  10. COZAAR [Concomitant]

REACTIONS (1)
  - COUGH [None]
